FAERS Safety Report 9167308 (Version 1)
Quarter: 2013Q1

REPORT INFORMATION
  Report Type: Spontaneous
  Country: CA (occurrence: None)
  Receive Date: 20130307
  Receipt Date: 20130307
  Transmission Date: 20140127
  Serious: Yes (Hospitalization)
  Sender: FDA-Public Use
  Company Number: S13001265

PATIENT
  Age: 70 Year
  Sex: Male

DRUGS (5)
  1. COVERSYL [Suspect]
  2. TARCEVA (ERLOTINIB HYDROCHLORIDE) TABLET [Suspect]
     Dosage: OCCLUSIVE
  3. LIPITOR (ATORVASTATIN CALCIUM) [Suspect]
  4. ZANTAC (RANITIDINE HYDROCHLORIDE) [Suspect]
  5. ZYPREXA (OLANZAPINE) [Suspect]

REACTIONS (2)
  - Pancreatitis [None]
  - Palmar-plantar erythrodysaesthesia syndrome [None]
